FAERS Safety Report 4489040-4 (Version None)
Quarter: 2004Q4

REPORT INFORMATION
  Report Type: 
  Country: None (occurrence: None)
  Receive Date: 20041027
  Receipt Date: 20040624
  Transmission Date: 20050328
  Serious: Yes (Other)
  Sender: FDA-Public Use
  Company Number: CIO04015535

PATIENT
  Age: 70 Year
  Sex: Female

DRUGS (1)
  1. VAPORUB, FORM/ VERSION UNKNOWN (CAMPHOR 129-150MG, MENTHOL 70.72-76.7M [Suspect]
     Indication: ASTHMA
     Dosage: RESPIRATORY
     Route: 055

REACTIONS (3)
  - EXERCISE TOLERANCE DECREASED [None]
  - HOARSENESS [None]
  - PNEUMONIA LIPOID [None]
